FAERS Safety Report 25403786 (Version 3)
Quarter: 2025Q3

REPORT INFORMATION
  Report Type: Spontaneous
  Country: EU (occurrence: EU)
  Receive Date: 20250606
  Receipt Date: 20250708
  Transmission Date: 20251020
  Serious: Yes (Death, Life-Threatening, Other)
  Sender: BAXTER
  Company Number: None

PATIENT
  Age: 74 Year
  Sex: Male

DRUGS (22)
  1. CYCLOPHOSPHAMIDE [Suspect]
     Active Substance: CYCLOPHOSPHAMIDE
     Indication: Diffuse large B-cell lymphoma stage IV
     Route: 065
  2. ETOPOSIDE [Suspect]
     Active Substance: ETOPOSIDE
     Indication: Diffuse large B-cell lymphoma stage IV
     Route: 065
  3. IFOSFAMIDE [Suspect]
     Active Substance: IFOSFAMIDE
     Indication: Diffuse large B-cell lymphoma stage IV
     Route: 065
  4. DOXORUBICIN [Suspect]
     Active Substance: DOXORUBICIN
     Indication: Diffuse large B-cell lymphoma stage IV
     Route: 065
  5. CARBOPLATIN [Suspect]
     Active Substance: CARBOPLATIN
     Indication: Diffuse large B-cell lymphoma stage IV
     Route: 065
  6. CISPLATIN [Suspect]
     Active Substance: CISPLATIN
     Indication: Diffuse large B-cell lymphoma stage IV
     Route: 065
  7. CYTARABINE [Suspect]
     Active Substance: CYTARABINE
     Indication: Diffuse large B-cell lymphoma stage IV
     Route: 065
  8. DEXAMETHASONE [Suspect]
     Active Substance: DEXAMETHASONE
     Indication: Diffuse large B-cell lymphoma stage IV
     Route: 065
  9. FLUDARABINE [Suspect]
     Active Substance: FLUDARABINE PHOSPHATE
     Indication: Diffuse large B-cell lymphoma stage IV
     Route: 065
  10. GANCICLOVIR [Suspect]
     Active Substance: GANCICLOVIR
     Indication: Cytomegalovirus chorioretinitis
     Route: 065
  11. METHOTREXATE [Suspect]
     Active Substance: METHOTREXATE
     Indication: Diffuse large B-cell lymphoma stage IV
     Route: 065
  12. PREDNISONE [Suspect]
     Active Substance: PREDNISONE
     Indication: Diffuse large B-cell lymphoma stage IV
     Route: 065
  13. RITUXIMAB [Suspect]
     Active Substance: RITUXIMAB
     Indication: Diffuse large B-cell lymphoma stage IV
     Route: 065
  14. VALGANCICLOVIR [Suspect]
     Active Substance: VALGANCICLOVIR
     Indication: Cytomegalovirus chorioretinitis
     Route: 065
  15. VALGANCICLOVIR [Suspect]
     Active Substance: VALGANCICLOVIR
     Indication: Infection prophylaxis
     Route: 065
  16. VINCRISTINE [Suspect]
     Active Substance: VINCRISTINE
     Indication: Diffuse large B-cell lymphoma stage IV
     Route: 065
  17. AXICABTAGENE CILOLEUCEL [Concomitant]
     Active Substance: AXICABTAGENE CILOLEUCEL
     Indication: Diffuse large B-cell lymphoma stage IV
     Route: 065
  18. FOSCARNET [Concomitant]
     Active Substance: FOSCARNET
     Indication: Cytomegalovirus chorioretinitis
     Dosage: 60 MG/KG, BID
     Route: 065
  19. FOSCARNET [Concomitant]
     Active Substance: FOSCARNET
     Dosage: 60 MG/KG, 1X A WEEK
     Route: 065
  20. FOSCARNET [Concomitant]
     Active Substance: FOSCARNET
     Dosage: 60 MG, EVERY 3 WK
     Route: 065
  21. FOSCARNET [Concomitant]
     Active Substance: FOSCARNET
     Route: 065
  22. SULFAMETHOXAZOLE\TRIMETHOPRIM [Concomitant]
     Active Substance: SULFAMETHOXAZOLE\TRIMETHOPRIM
     Indication: Diffuse large B-cell lymphoma stage IV
     Route: 065

REACTIONS (14)
  - Death [Fatal]
  - Encephalitis cytomegalovirus [Unknown]
  - Meningitis aseptic [Unknown]
  - Cytomegalovirus chorioretinitis [Unknown]
  - Hypogammaglobulinaemia [Unknown]
  - Neurological decompensation [Unknown]
  - Drug ineffective [Unknown]
  - Congenital aplasia [Unknown]
  - Dilatation ventricular [Unknown]
  - Meningitis viral [Unknown]
  - Lymphopenia [Unknown]
  - Pancytopenia [Not Recovered/Not Resolved]
  - Myelosuppression [Unknown]
  - Neutropenia [Recovered/Resolved]
